FAERS Safety Report 16110670 (Version 1)
Quarter: 2019Q1

REPORT INFORMATION
  Report Type: Spontaneous
  Country: US (occurrence: US)
  Receive Date: 20190325
  Receipt Date: 20190325
  Transmission Date: 20190418
  Serious: Yes (Other)
  Sender: FDA-Public Use
  Company Number: PHHY2019US064940

PATIENT
  Age: 16 Year
  Sex: Female

DRUGS (5)
  1. AMIODARONE [Suspect]
     Active Substance: AMIODARONE
     Indication: VENTRICULAR TACHYCARDIA
     Dosage: 5 ?G/KG/MIN
     Route: 041
  2. AMIODARONE [Suspect]
     Active Substance: AMIODARONE
     Dosage: 150 MG, UNK
     Route: 065
  3. EPINEPHRINE. [Concomitant]
     Active Substance: EPINEPHRINE
     Indication: VENTRICULAR TACHYCARDIA
     Route: 065
  4. AMIODARONE [Suspect]
     Active Substance: AMIODARONE
     Dosage: 5 ?G/KG/MIN, UNK
     Route: 041
  5. AMIODARONE [Suspect]
     Active Substance: AMIODARONE
     Dosage: UNK
     Route: 048

REACTIONS (6)
  - Pulmonary oedema [Recovering/Resolving]
  - Mucosal hyperaemia [Recovering/Resolving]
  - Bronchial haemorrhage [Recovering/Resolving]
  - Increased bronchial secretion [Recovering/Resolving]
  - Pulmonary toxicity [Recovering/Resolving]
  - Acute respiratory distress syndrome [Recovering/Resolving]
